FAERS Safety Report 16413121 (Version 1)
Quarter: 2019Q2

REPORT INFORMATION
  Report Type: Spontaneous
  Country: SI (occurrence: SI)
  Receive Date: 20190611
  Receipt Date: 20190611
  Transmission Date: 20190711
  Serious: Yes (Hospitalization)
  Sender: FDA-Public Use
  Company Number: SI-TEVA-2019-SI-1038870

PATIENT
  Age: 76 Year
  Sex: Female

DRUGS (6)
  1. REGLAN [Concomitant]
     Active Substance: METOCLOPRAMIDE HYDROCHLORIDE
     Dosage: IF NECESSARY
  2. BOPACATIN 10 MG/ML [Suspect]
     Active Substance: CARBOPLATIN
     Indication: OVARIAN CANCER
     Dosage: 450 MG
     Route: 042
     Dates: start: 20141010, end: 20190103
  3. MILGAMMA [Concomitant]
     Dosage: FORM OF ADMIN:UNSPECIFIED
  4. HELEX [Concomitant]
     Active Substance: ALPRAZOLAM
     Dosage: IF NECESSARY
  5. NALGESIN [Concomitant]
     Dosage: IF NECESSARY
  6. NEXIUM 20 MG [Concomitant]

REACTIONS (5)
  - Dyspnoea [Recovered/Resolved]
  - Vomiting [Recovered/Resolved]
  - Nausea [Recovered/Resolved]
  - Sinus tachycardia [Recovered/Resolved]
  - Abdominal pain [Recovered/Resolved]

NARRATIVE: CASE EVENT DATE: 20190103
